FAERS Safety Report 7660268-5 (Version None)
Quarter: 2011Q3

REPORT INFORMATION
  Report Type: 
  Country: None (occurrence: None)
  Receive Date: 20110805
  Receipt Date: 20110725
  Transmission Date: 20111222
  Serious: Yes (Hospitalization)
  Sender: FDA-Public Use
  Company Number: PHHY2011FR67552

PATIENT
  Sex: Female

DRUGS (5)
  1. EXELON [Suspect]
     Dosage: 9.5 MG/24 HOURS
     Route: 062
  2. INDAPAMIDE [Suspect]
     Dosage: UNK UKN, UNK
     Dates: start: 20110506, end: 20110508
  3. INDAPAMIDE [Concomitant]
     Dosage: 2.5 MG, UNK
  4. INDAPAMIDE [Concomitant]
     Dosage: UNK UKN, UNK
  5. EXELON [Suspect]
     Dosage: 1.5 MG, BID
     Route: 048
     Dates: start: 20110506

REACTIONS (5)
  - FALL [None]
  - JOINT DISLOCATION [None]
  - CONFUSIONAL STATE [None]
  - HYPOTENSION [None]
  - DISORIENTATION [None]
